FAERS Safety Report 7419740-5 (Version None)
Quarter: 2011Q2

REPORT INFORMATION
  Report Type: 
  Country: None (occurrence: None)
  Receive Date: 20110412
  Receipt Date: 20110412
  Transmission Date: 20111010
  Serious: Yes (Death)
  Sender: FDA-Public Use
  Company Number: None

PATIENT
  Age: 76 Year
  Sex: Male
  Weight: 81.6475 kg

DRUGS (1)
  1. VELCADE [Suspect]

REACTIONS (1)
  - CARDIAC FAILURE CONGESTIVE [None]
